FAERS Safety Report 16408927 (Version 3)
Quarter: 2019Q3

REPORT INFORMATION
  Report Type: Spontaneous
  Country: IL (occurrence: IL)
  Receive Date: 20190610
  Receipt Date: 20190719
  Transmission Date: 20191004
  Serious: Yes (Death, Other)
  Sender: FDA-Public Use
  Company Number: PHHY2019IL130313

PATIENT
  Sex: Female

DRUGS (1)
  1. AFINITOR [Suspect]
     Active Substance: EVEROLIMUS
     Indication: PRODUCT USED FOR UNKNOWN INDICATION
     Dosage: UNK
     Route: 065

REACTIONS (7)
  - Hemiplegia [Fatal]
  - Seizure [Fatal]
  - Glioblastoma multiforme [Fatal]
  - Pneumothorax [Unknown]
  - Headache [Fatal]
  - Respiratory distress [Unknown]
  - Incontinence [Fatal]

NARRATIVE: CASE EVENT DATE: 20181021
